FAERS Safety Report 5274334-5 (Version None)
Quarter: 2007Q1

REPORT INFORMATION
  Report Type: 
  Country: None (occurrence: None)
  Receive Date: 20070323
  Receipt Date: 20070308
  Transmission Date: 20070707
  Serious: Yes (Hospitalization)
  Sender: FDA-Public Use
  Company Number: JP-PFIZER INC-2007022396

PATIENT
  Age: 80 Year
  Sex: Female

DRUGS (11)
  1. MIGLITOL TABLET [Suspect]
     Indication: DIABETES MELLITUS
     Route: 048
     Dates: start: 20070201, end: 20070305
  2. RIMATIL [Suspect]
     Indication: RHEUMATOID ARTHRITIS
     Dosage: DAILY DOSE:900MG
     Route: 048
     Dates: start: 20061201, end: 20070305
  3. AMARYL [Concomitant]
     Route: 048
  4. VALSARTAN [Concomitant]
     Route: 048
  5. PREDONINE [Concomitant]
     Route: 048
     Dates: start: 20061201, end: 20070305
  6. PARIET [Concomitant]
     Route: 048
  7. ALLOPURINOL [Concomitant]
     Route: 048
  8. MAGNESIUM OXIDE [Concomitant]
     Route: 048
  9. BIOTAMIN [Concomitant]
     Route: 048
  10. OSTELUC [Concomitant]
     Route: 048
     Dates: end: 20070305
  11. MUCOSTA [Concomitant]
     Route: 048

REACTIONS (7)
  - ALANINE AMINOTRANSFERASE INCREASED [None]
  - ASPARTATE AMINOTRANSFERASE INCREASED [None]
  - BLOOD ALKALINE PHOSPHATASE INCREASED [None]
  - BLOOD BILIRUBIN INCREASED [None]
  - GAMMA-GLUTAMYLTRANSFERASE INCREASED [None]
  - HEPATIC ENZYME INCREASED [None]
  - JAUNDICE [None]
